FAERS Safety Report 5805333-X (Version None)
Quarter: 2008Q3

REPORT INFORMATION
  Report Type: 
  Country: None (occurrence: None)
  Receive Date: 20080709
  Receipt Date: 20080702
  Transmission Date: 20090109
  Serious: Yes (Death, Other)
  Sender: FDA-Public Use
  Company Number: US-ELI_LILLY_AND_COMPANY-US200807000570

PATIENT
  Sex: Female

DRUGS (1)
  1. GLUCAGON [Suspect]
     Dates: start: 20040101

REACTIONS (2)
  - COMA [None]
  - RENAL FAILURE [None]
